FAERS Safety Report 10238434 (Version 1)
Quarter: 2014Q2

REPORT INFORMATION
  Report Type: Spontaneous
  Country: US (occurrence: None)
  Receive Date: 20140613
  Receipt Date: 20140613
  Transmission Date: 20141212
  Serious: Yes (Hospitalization)
  Sender: FDA-Public Use
  Company Number: None

PATIENT
  Age: 72 Year
  Sex: Female
  Weight: 91.5 kg

DRUGS (20)
  1. OXALIPLATIN [Suspect]
     Indication: ADENOCARCINOMA PANCREAS
     Dosage: 170MG?EVERY 2 WEEKS ?IV
     Route: 042
     Dates: start: 20140310
  2. LEUCOVORIN [Suspect]
     Indication: ADENOCARCINOMA PANCREAS
     Dosage: 600MG?EVERY 2 WEEKS ?IV
     Route: 042
     Dates: start: 20140310
  3. 5-FLUOROURACIL [Suspect]
     Indication: ADENOCARCINOMA PANCREAS
     Dosage: 800MG/4800MG?EVERY 2 WEELS?IV
     Route: 042
     Dates: start: 20140210, end: 20140301
  4. METFORMIN 500 MG [Suspect]
     Indication: ADENOCARCINOMA PANCREAS
     Route: 048
     Dates: start: 20140203, end: 20140319
  5. OXYCODONE [Concomitant]
  6. INSULIN LISP AND LISP PROT, HUM, (HUMALOG MIX 75-25 KWIKPEN) [Concomitant]
  7. ERGOCALCIFEROL [Concomitant]
  8. VITAMIN D2 (VITAMIN D) [Concomitant]
  9. ONDANSETRON [Concomitant]
  10. FENTANYL (DURAGESIC) [Concomitant]
  11. METHYLPHENIDATE [Concomitant]
  12. POTASSIUM CHLORIDE SR [Concomitant]
  13. OMEPRAZOLE (PRILOSEC) [Concomitant]
  14. PROCHLORPERAZINE [Concomitant]
  15. CITALOPRAM (CELEXA) [Concomitant]
  16. FLUTICASONE (FLOVENT HFA) [Concomitant]
  17. PRAVASTATIN [Concomitant]
  18. LEVALBUTEROL (XOPENEX) [Concomitant]
  19. LOSARTAN-HYDROCHLOROTHIAZIDE [Concomitant]
  20. LIRAGLUTIDE (VICTOZA 2-PAK) [Concomitant]

REACTIONS (1)
  - Vomiting [None]
